FAERS Safety Report 7020827-X (Version None)
Quarter: 2010Q3

REPORT INFORMATION
  Report Type: 
  Country: None (occurrence: None)
  Receive Date: 20100929
  Receipt Date: 20100917
  Transmission Date: 20110219
  Serious: Yes (Hospitalization)
  Sender: FDA-Public Use
  Company Number: IT-PFIZER INC-2010118549

PATIENT
  Age: 46 Year
  Sex: Male

DRUGS (2)
  1. ZITROMAX [Suspect]
     Indication: PHARYNGOTONSILLITIS
     Dosage: 500 MG DAILY
     Route: 048
     Dates: start: 20100812, end: 20100812
  2. TACHIPIRINA [Suspect]
     Indication: PHARYNGOTONSILLITIS
     Dosage: 1500 MG DAILY
     Route: 048
     Dates: start: 20100811, end: 20100812

REACTIONS (3)
  - BRONCHOSPASM [None]
  - LARYNGEAL OEDEMA [None]
  - URTICARIA [None]
